FAERS Safety Report 5877958-7 (Version None)
Quarter: 2008Q3

REPORT INFORMATION
  Report Type: 
  Country: None (occurrence: None)
  Receive Date: 20080911
  Receipt Date: 20080908
  Transmission Date: 20090109
  Serious: Yes (Hospitalization)
  Sender: FDA-Public Use
  Company Number: B0536619A

PATIENT
  Sex: Female
  Weight: 80 kg

DRUGS (1)
  1. AUGMENTIN '125' [Suspect]
     Indication: PYELONEPHRITIS
     Dosage: 1G TWICE PER DAY
     Route: 048
     Dates: start: 20080801, end: 20080810

REACTIONS (3)
  - DRUG INEFFECTIVE [None]
  - PROTEINURIA [None]
  - WHITE BLOOD CELLS URINE POSITIVE [None]
